FAERS Safety Report 7331714-1 (Version None)
Quarter: 2011Q1

REPORT INFORMATION
  Report Type: 
  Country: None (occurrence: None)
  Receive Date: 20110304
  Receipt Date: 20110223
  Transmission Date: 20110831
  Serious: Yes (Other)
  Sender: FDA-Public Use
  Company Number: PHHY2010US83400

PATIENT
  Sex: Male

DRUGS (6)
  1. PRILOSEC [Concomitant]
     Dosage: 1 DF, QD
  2. ULTRAM [Concomitant]
     Dosage: 200 MG, QD
  3. VITAMIN D [Concomitant]
     Dosage: 1000 IU, QD
  4. EXTAVIA [Suspect]
     Indication: MULTIPLE SCLEROSIS
     Dosage: 0.25 MG, QOD
     Route: 058
     Dates: start: 20100317
  5. MULTI-VITAMINS [Concomitant]
     Dosage: 1 DF, QD
  6. CLARITIN [Concomitant]

REACTIONS (3)
  - SLEEP DISORDER [None]
  - POLLAKIURIA [None]
  - EMOTIONAL DISORDER [None]
